FAERS Safety Report 19123292 (Version 3)
Quarter: 2022Q2

REPORT INFORMATION
  Report Type: Spontaneous
  Country: CA (occurrence: CA)
  Receive Date: 20210412
  Receipt Date: 20220404
  Transmission Date: 20220721
  Serious: Yes (Other)
  Sender: FDA-Public Use
  Company Number: CA-AMGEN-CANSP2021049551

PATIENT
  Age: 72 Year
  Sex: Male
  Weight: 97 kg

DRUGS (12)
  1. ENBREL [Suspect]
     Active Substance: ETANERCEPT
     Indication: Rheumatoid arthritis
     Dosage: UNK
  2. AZITHROMYCIN [Suspect]
     Active Substance: AZITHROMYCIN
     Dosage: UNK
  3. FUROSEMIDE [Suspect]
     Active Substance: FUROSEMIDE
     Dosage: UNK
  4. AMOXICILLIN TRIHYDRATE [Suspect]
     Active Substance: AMOXICILLIN
     Dosage: UNK
  5. FORMOTEROL FUMARATE\MOMETASONE FUROATE [Suspect]
     Active Substance: FORMOTEROL FUMARATE\MOMETASONE FUROATE
     Dosage: 2 DOSAGE FORM, BID
  6. LASIX [Suspect]
     Active Substance: FUROSEMIDE
     Dosage: UNK
  7. MEPOLIZUMAB [Suspect]
     Active Substance: MEPOLIZUMAB
     Indication: Asthma
     Dosage: 100 MILLIGRAM
     Route: 042
  8. PREDNISONE [Suspect]
     Active Substance: PREDNISONE
     Dosage: UNK
     Route: 065
  9. TIOTROPIUM BROMIDE [Suspect]
     Active Substance: TIOTROPIUM BROMIDE
     Dosage: 18 MICROGRAM, QD
  10. VENTOLIN [Suspect]
     Active Substance: ALBUTEROL SULFATE
     Dosage: UNK
  11. MOMETASONE FUROATE [Suspect]
     Active Substance: MOMETASONE FUROATE
     Dosage: UNK
  12. ALBUTEROL SULFATE [Suspect]
     Active Substance: ALBUTEROL SULFATE
     Dosage: UNK
     Route: 065

REACTIONS (38)
  - Arthritis [Unknown]
  - Asthma [Unknown]
  - Full blood count abnormal [Unknown]
  - Bronchial neoplasm benign [Unknown]
  - Bronchial wall thickening [Unknown]
  - Bronchiectasis [Unknown]
  - Chronic obstructive pulmonary disease [Unknown]
  - Condition aggravated [Unknown]
  - Cough [Unknown]
  - Drug dependence [Unknown]
  - Dyspnoea exertional [Unknown]
  - Exposure to allergen [Unknown]
  - Immunosuppression [Unknown]
  - Increased bronchial secretion [Unknown]
  - Malaise [Unknown]
  - Obstructive airways disorder [Unknown]
  - Pleural fibrosis [Unknown]
  - Pollakiuria [Unknown]
  - Productive cough [Unknown]
  - Pulmonary congestion [Unknown]
  - Rheumatoid arthritis [Unknown]
  - Rhinitis allergic [Unknown]
  - Rib fracture [Unknown]
  - Sputum discoloured [Unknown]
  - Sputum increased [Unknown]
  - Type 2 diabetes mellitus [Unknown]
  - Upper-airway cough syndrome [Unknown]
  - Weight increased [Unknown]
  - Wheezing [Unknown]
  - Peripheral swelling [Unknown]
  - Pulmonary fibrosis [Unknown]
  - Bronchitis haemophilus [Unknown]
  - Cardiac failure congestive [Unknown]
  - Infection [Unknown]
  - Nasopharyngitis [Unknown]
  - Viral infection [Unknown]
  - Interstitial lung disease [Unknown]
  - Off label use [Unknown]
